FAERS Safety Report 25178662 (Version 2)
Quarter: 2025Q2

REPORT INFORMATION
  Report Type: Spontaneous
  Country: BE (occurrence: BE)
  Receive Date: 20250409
  Receipt Date: 20250517
  Transmission Date: 20250717
  Serious: No
  Sender: SANDOZ
  Company Number: BE-SANDOZ-SDZ2025BE021667

PATIENT
  Age: 52 Year
  Sex: Male

DRUGS (1)
  1. OMNITROPE [Suspect]
     Active Substance: SOMATROPIN
     Indication: Growth hormone deficiency
     Dosage: 0.006 MG, QD, EVERY 2 MONTHS
     Route: 058
     Dates: start: 202102

REACTIONS (2)
  - Product use issue [Unknown]
  - Needle issue [Unknown]
